FAERS Safety Report 8001616-6 (Version None)
Quarter: 2011Q4

REPORT INFORMATION
  Report Type: 
  Country: None (occurrence: None)
  Receive Date: 20111219
  Receipt Date: 20111205
  Transmission Date: 20120403
  Serious: Yes (Hospitalization)
  Sender: FDA-Public Use
  Company Number: 2011MA017207

PATIENT
  Sex: Male

DRUGS (29)
  1. ASPIRIN [Concomitant]
  2. HYDROCODONE [Concomitant]
  3. ASPIRIN [Concomitant]
  4. HYDROCODONE [Concomitant]
  5. OXYCODONE HCL [Concomitant]
  6. NITROGLYCERIN [Concomitant]
  7. CYCLOBENZAPRINE [Concomitant]
  8. AMIODARONE HCL [Concomitant]
  9. DOCUSATE [Concomitant]
  10. FUROSEMIDE [Concomitant]
  11. DIGOXIN [Suspect]
     Dosage: 0.25 MG
     Dates: start: 20070425, end: 20080425
  12. WARFARIN SODIUM [Concomitant]
  13. RAMIPRIL [Concomitant]
  14. METFORMIN HCL [Concomitant]
  15. ALTACE [Concomitant]
  16. COREG [Concomitant]
  17. BUMEX [Concomitant]
  18. LEVAQUIN [Concomitant]
  19. SPIRONOLACTONE [Concomitant]
  20. NOVOLOG [Concomitant]
  21. LASIX [Concomitant]
  22. NEXIUM [Concomitant]
  23. METOPROLOL SUCCINATE [Concomitant]
  24. CARVEDILOL [Concomitant]
  25. KENALOG [Concomitant]
  26. LANTUS [Concomitant]
  27. ENALAPRIL MALEATE [Concomitant]
  28. FLAGYL [Concomitant]
  29. TOPROL-XL [Concomitant]

REACTIONS (41)
  - COUGH [None]
  - CHILLS [None]
  - OEDEMA PERIPHERAL [None]
  - IMPLANTABLE DEFIBRILLATOR INSERTION [None]
  - DIALYSIS [None]
  - CARDIOMEGALY [None]
  - ATRIAL FIBRILLATION [None]
  - NAUSEA [None]
  - RENAL FAILURE CHRONIC [None]
  - MITRAL VALVE REPAIR [None]
  - ARRHYTHMIA [None]
  - ABDOMINAL PAIN UPPER [None]
  - SPUTUM DISCOLOURED [None]
  - HYPERLIPIDAEMIA [None]
  - CARDIOACTIVE DRUG LEVEL INCREASED [None]
  - HYPERTENSION [None]
  - SWELLING [None]
  - DYSPNOEA [None]
  - PNEUMONIA [None]
  - CARDIAC FAILURE CONGESTIVE [None]
  - CONTUSION [None]
  - OEDEMA [None]
  - ELECTROCARDIOGRAM ST SEGMENT ELEVATION [None]
  - BLOOD PRESSURE DECREASED [None]
  - CHEST PAIN [None]
  - BUNDLE BRANCH BLOCK LEFT [None]
  - BLOOD GLUCOSE INCREASED [None]
  - GASTROOESOPHAGEAL REFLUX DISEASE [None]
  - VOMITING [None]
  - DIZZINESS [None]
  - WHEELCHAIR USER [None]
  - LUNG INFILTRATION [None]
  - PULMONARY OEDEMA [None]
  - PYREXIA [None]
  - MALAISE [None]
  - HYPOTHERMIA [None]
  - CHRONIC OBSTRUCTIVE PULMONARY DISEASE [None]
  - SKIN DISCOLOURATION [None]
  - JOINT SWELLING [None]
  - DIABETES MELLITUS [None]
  - CREPITATIONS [None]
